FAERS Safety Report 13697836 (Version 1)
Quarter: 2017Q2

REPORT INFORMATION
  Report Type: Spontaneous
  Country: US (occurrence: US)
  Receive Date: 20170628
  Receipt Date: 20170628
  Transmission Date: 20170830
  Serious: No
  Sender: FDA-Public Use
  Company Number: US-MYLANLABS-2016M1033818

PATIENT
  Age: 42 Year
  Sex: Female

DRUGS (10)
  1. CLOZAPINE TABLETS, USP [Suspect]
     Active Substance: CLOZAPINE
     Dosage: 350 MG, QH
     Route: 048
     Dates: start: 20160728, end: 20160803
  2. LEXAPRO [Concomitant]
     Active Substance: ESCITALOPRAM OXALATE
     Indication: PRODUCT USED FOR UNKNOWN INDICATION
     Dosage: 10 MG, UNK
  3. CLOZAPINE TABLETS, USP [Suspect]
     Active Substance: CLOZAPINE
     Dosage: 400 MG, QH
     Route: 048
     Dates: start: 20160727, end: 20160728
  4. CLONAZEPAM. [Concomitant]
     Active Substance: CLONAZEPAM
     Indication: PRODUCT USED FOR UNKNOWN INDICATION
     Dosage: 0.5 MG, UNK
  5. PROPRANOLOL [Concomitant]
     Active Substance: PROPRANOLOL HYDROCHLORIDE
     Indication: PRODUCT USED FOR UNKNOWN INDICATION
     Dosage: UNK
  6. PREGABALIN. [Concomitant]
     Active Substance: PREGABALIN
     Indication: PRODUCT USED FOR UNKNOWN INDICATION
     Dosage: UNK
  7. CLOZAPINE TABLETS, USP [Suspect]
     Active Substance: CLOZAPINE
     Indication: PRODUCT USED FOR UNKNOWN INDICATION
     Dosage: 500 MG, QH
     Route: 048
     Dates: end: 20160727
  8. HYDROXYZINE [Concomitant]
     Active Substance: HYDROXYZINE HYDROCHLORIDE
     Indication: PRODUCT USED FOR UNKNOWN INDICATION
     Dosage: UNK
  9. ZYPREXA [Concomitant]
     Active Substance: OLANZAPINE
     Indication: PRODUCT USED FOR UNKNOWN INDICATION
     Dosage: 10 MG, UNK
  10. CLOZAPINE TABLETS, USP [Suspect]
     Active Substance: CLOZAPINE
     Dosage: 250 MG, QH
     Route: 048
     Dates: start: 20160803

REACTIONS (1)
  - Antipsychotic drug level increased [Not Recovered/Not Resolved]

NARRATIVE: CASE EVENT DATE: 20160726
